FAERS Safety Report 24404355 (Version 1)
Quarter: 2024Q4

REPORT INFORMATION
  Report Type: Spontaneous
  Country: DK (occurrence: DK)
  Receive Date: 20241007
  Receipt Date: 20241007
  Transmission Date: 20250115
  Serious: Yes (Hospitalization, Other)
  Sender: OXFORD PHARMACEUTICALS
  Company Number: DK-Oxford Pharmaceuticals, LLC-2162561

PATIENT
  Age: 49 Year
  Sex: Female

DRUGS (1)
  1. BACLOFEN [Suspect]
     Active Substance: BACLOFEN
     Indication: Product used for unknown indication

REACTIONS (3)
  - Toxic encephalopathy [Unknown]
  - Intentional overdose [Unknown]
  - Toxicity to various agents [Unknown]
